FAERS Safety Report 26169009 (Version 1)
Quarter: 2025Q4

REPORT INFORMATION
  Report Type: Spontaneous
  Country: EU (occurrence: EU)
  Receive Date: 20251217
  Receipt Date: 20251217
  Transmission Date: 20260119
  Serious: Yes (Life-Threatening)
  Sender: RANBAXY
  Company Number: EU-AFSSAPS-NC2025001043

PATIENT
  Age: 35 Year
  Sex: Male
  Weight: 91.8 kg

DRUGS (6)
  1. ESOMEPRAZOLE [Suspect]
     Active Substance: ESOMEPRAZOLE
     Indication: Prophylaxis
     Dosage: 40 MILLIGRAM, DAILY
     Route: 048
     Dates: start: 20250507, end: 20250511
  2. ZITHROMAX [Suspect]
     Active Substance: AZITHROMYCIN DIHYDRATE
     Indication: Bronchitis
     Dosage: 250 MILLIGRAM, DAILY
     Route: 048
     Dates: start: 20250507, end: 20250511
  3. RYALTRIS [Suspect]
     Active Substance: MOMETASONE FUROATE MONOHYDRATE\OLOPATADINE HYDROCHLORIDE
     Indication: Rhinitis
     Dosage: 2 DOSAGE FORM, DAILY
     Route: 045
     Dates: start: 20250507, end: 20250511
  4. ALBUTEROL [Suspect]
     Active Substance: ALBUTEROL
     Indication: Dyspnoea
     Dosage: 100 MCG, DAILY
     Route: 055
     Dates: start: 20250507, end: 20250511
  5. BUDESONIDE\FORMOTEROL\GLYCOPYRRONIUM [Suspect]
     Active Substance: BUDESONIDE\FORMOTEROL\GLYCOPYRRONIUM
     Indication: Dyspnoea
     Dosage: 4 DOSAGE FORM, DAILY
     Route: 055
     Dates: start: 20250507, end: 20250511
  6. PULMICORT TURBUHALER [Suspect]
     Active Substance: BUDESONIDE
     Indication: Dyspnoea
     Dosage: 3 DOSAGE FORM, DAILY
     Route: 055
     Dates: start: 20250507, end: 20250511

REACTIONS (1)
  - Drug reaction with eosinophilia and systemic symptoms [Recovered/Resolved]

NARRATIVE: CASE EVENT DATE: 20250513
